FAERS Safety Report 10141766 (Version 2)
Quarter: 2014Q2

REPORT INFORMATION
  Report Type: Report from Study
  Country: HK (occurrence: HK)
  Receive Date: 20140429
  Receipt Date: 20140505
  Transmission Date: 20141212
  Serious: Yes (Hospitalization)
  Sender: FDA-Public Use
  Company Number: PHHO2014HK006086

PATIENT
  Age: 75 Year
  Sex: Male
  Weight: 65.8 kg

DRUGS (11)
  1. BLINDED ENALAPRIL [Suspect]
     Indication: CARDIAC FAILURE CHRONIC
     Dosage: DOUBLE BLIND
     Route: 048
     Dates: start: 20120619, end: 20140416
  2. BLINDED LCZ696 [Suspect]
     Indication: CARDIAC FAILURE CHRONIC
     Dosage: DOUBLE BLIND
     Route: 048
     Dates: start: 20120619, end: 20140416
  3. BLINDED NO TREATMENT RECEIVED [Suspect]
     Indication: CARDIAC FAILURE CHRONIC
     Dosage: DOUBLE BLIND
     Route: 048
     Dates: start: 20120619, end: 20140416
  4. DIOVAN [Suspect]
     Indication: CARDIAC FAILURE CHRONIC
     Dosage: 80 MG, DAILY
     Dates: start: 20140416
  5. THYROXINE SODIUM [Concomitant]
     Indication: HYPOTHYROIDISM
     Dosage: 100 MG, DAILY
     Dates: start: 20090814
  6. CARVEDIOL [Concomitant]
     Indication: CARDIAC FAILURE CHRONIC
     Dosage: 25 MG, BID
     Dates: start: 20120309
  7. DIGOXIN [Concomitant]
     Indication: CARDIAC FAILURE CHRONIC
     Dosage: 125 UG, DAILY
     Dates: start: 20040123
  8. WARFARIN [Concomitant]
     Indication: THROMBOSIS PROPHYLAXIS
     Dosage: 2 MG, DAILY
     Dates: start: 20090911
  9. AMIODARONE [Concomitant]
     Indication: CARDIAC FAILURE CHRONIC
     Dosage: 100 MG, DAILY
     Dates: start: 20090814
  10. SPIRONOLACTONE [Concomitant]
     Indication: CARDIAC FAILURE CHRONIC
     Dosage: 25 MG, DAILY
     Dates: start: 20120203
  11. HYDROCHLOROTHIAZIDE [Concomitant]
     Indication: CARDIAC FAILURE CHRONIC
     Dosage: 25 MG, DAILY
     Dates: start: 20130301

REACTIONS (1)
  - Cardiac failure congestive [Recovered/Resolved]
